FAERS Safety Report 8638602 (Version 3)
Quarter: 2013Q1

REPORT INFORMATION
  Report Type: Spontaneous
  Country: US (occurrence: US)
  Receive Date: 20120627
  Receipt Date: 20130311
  Transmission Date: 20140127
  Serious: Yes (Hospitalization)
  Sender: FDA-Public Use
  Company Number: US-BAYER-2012-062160

PATIENT
  Age: 14 Year
  Sex: Female
  Weight: 44.44 kg

DRUGS (10)
  1. OCELLA [Suspect]
     Indication: ACNE
     Dosage: UNK
     Dates: start: 20090813, end: 20091001
  2. OCELLA [Suspect]
     Indication: PREMENSTRUAL SYNDROME
  3. SINGULAIR [Concomitant]
     Indication: ASTHMA
  4. CENTRALLY ACTING SYMPATHOMIMETICS [Concomitant]
     Indication: ATTENTION DEFICIT/HYPERACTIVITY DISORDER
  5. ALBUTEROL [Concomitant]
     Indication: WHEEZING
     Dosage: UNK UNK, PRN
     Route: 055
  6. NASONEX [Concomitant]
     Indication: MULTIPLE ALLERGIES
     Dosage: UNK UNK, PRN
     Route: 045
  7. QVAR [Concomitant]
     Indication: ASTHMA
     Dosage: UNK UNK, PRN
     Route: 055
  8. RANITIDINE [Concomitant]
     Dosage: 150 MG, PRN
  9. NORETHINDRONE [Concomitant]
     Indication: AMENORRHOEA
     Dosage: 5 MG, DAILY
  10. FLUVIRIN [Concomitant]
     Dosage: UNK
     Dates: start: 20090924

REACTIONS (7)
  - Deep vein thrombosis [None]
  - Arthralgia [None]
  - Joint stiffness [None]
  - Local swelling [None]
  - Anxiety [None]
  - Fatigue [None]
  - Mental disorder [None]
